FAERS Safety Report 5337764-9 (Version None)
Quarter: 2007Q2

REPORT INFORMATION
  Report Type: 
  Country: None (occurrence: None)
  Receive Date: 20070308
  Receipt Date: 20070119
  Transmission Date: 20071010
  Serious: No
  Sender: FDA-Public Use
  Company Number: 2006-BP-15036BP

PATIENT
  Sex: Male

DRUGS (8)
  1. SPIRIVA [Suspect]
     Indication: CHRONIC OBSTRUCTIVE PULMONARY DISEASE
     Dosage: 18 MCG (18 MCG, 1 IN 1 D), IH
     Route: 055
     Dates: start: 20060801
  2. DILTIAZEM [Concomitant]
  3. AVALIDE(KARVEA HCT) [Concomitant]
  4. DIGOXIN [Concomitant]
  5. WARFARIN SODIUM [Concomitant]
  6. CENTRUM SILVER [Concomitant]
  7. UROXATRAL [Concomitant]
  8. SPIRIVA [Suspect]
     Indication: DYSPNOEA

REACTIONS (2)
  - DRUG INEFFECTIVE [None]
  - VISION BLURRED [None]
